FAERS Safety Report 11054937 (Version 1)
Quarter: 2015Q2

REPORT INFORMATION
  Report Type: Report from Study
  Country: US (occurrence: US)
  Receive Date: 20150422
  Receipt Date: 20150422
  Transmission Date: 20150821
  Serious: Yes (Hospitalization, Other)
  Sender: FDA-Public Use
  Company Number: US-SA-2014SA006625

PATIENT
  Age: 62 Year
  Sex: Female
  Weight: 63.5 kg

DRUGS (2)
  1. AUBAGIO [Suspect]
     Active Substance: TERIFLUNOMIDE
     Indication: MULTIPLE SCLEROSIS
     Route: 048
     Dates: start: 20130624, end: 20130723
  2. AUBAGIO [Suspect]
     Active Substance: TERIFLUNOMIDE
     Indication: MULTIPLE SCLEROSIS
     Route: 048
     Dates: start: 20130801

REACTIONS (12)
  - Postoperative wound infection [Recovering/Resolving]
  - Bladder disorder [Unknown]
  - Alopecia [Recovered/Resolved]
  - Back pain [Unknown]
  - Hepatic enzyme increased [Recovered/Resolved]
  - Pain [Unknown]
  - Diarrhoea [Recovered/Resolved]
  - Weight decreased [Unknown]
  - Ankle fracture [Recovering/Resolving]
  - Insomnia [Unknown]
  - Burning sensation [Unknown]
  - Nausea [Unknown]

NARRATIVE: CASE EVENT DATE: 20130629
